FAERS Safety Report 4794833-X (Version None)
Quarter: 2005Q3

REPORT INFORMATION
  Report Type: 
  Country: None (occurrence: None)
  Receive Date: 20050914
  Receipt Date: 20041008
  Transmission Date: 20060218
  Serious: Yes (Death, Other)
  Sender: FDA-Public Use
  Company Number: 163-20785-04100261

PATIENT
  Age: 65 Year
  Sex: Female
  Weight: 85.8 kg

DRUGS (13)
  1. THALOMID [Suspect]
     Indication: PANCREATIC CARCINOMA
     Dosage: 300 MG, DAILY, ORAL; SEE IMAGE
     Route: 048
     Dates: start: 20040407, end: 20040413
  2. THALOMID [Suspect]
     Indication: PANCREATIC CARCINOMA
     Dosage: 300 MG, DAILY, ORAL; SEE IMAGE
     Route: 048
     Dates: start: 20040414, end: 20040509
  3. THALOMID [Suspect]
     Indication: PANCREATIC CARCINOMA
     Dosage: 300 MG, DAILY, ORAL; SEE IMAGE
     Route: 048
     Dates: start: 20040525, end: 20040602
  4. CELECOXIB (CELECOXIB) (200, CAPSULES) [Suspect]
     Indication: PANCREATIC CARCINOMA
     Dosage: 400 MG, BID, ORAL
     Route: 048
     Dates: start: 20040407, end: 20040602
  5. GEMCITABINE (GEMCITABINE) [Suspect]
     Indication: PANCREATIC CARCINOMA
     Dosage: 1,000 MG/M2 ON DAYS 1 AND 8 Q 21 DAYS, INTRAVENOUS
     Route: 042
     Dates: start: 20040421, end: 20040602
  6. COMPAZINE [Concomitant]
  7. METOPROLOL TARTRATE [Concomitant]
  8. TRIAMTERENE AND HYDROCHLOROTHIAZIDE [Concomitant]
  9. NORVASC [Concomitant]
  10. CENTRUM SILVER (CENTRUM SILVER) [Concomitant]
  11. VITAMIN B12 [Concomitant]
  12. ASPIRIN [Concomitant]
  13. CELEXA [Concomitant]

REACTIONS (3)
  - DEATH [None]
  - DISEASE PROGRESSION [None]
  - THROMBOSIS [None]
